FAERS Safety Report 14196615 (Version 2)
Quarter: 2017Q4

REPORT INFORMATION
  Report Type: Spontaneous
  Country: GE (occurrence: GE)
  Receive Date: 20171116
  Receipt Date: 20171212
  Transmission Date: 20180321
  Serious: Yes (Other)
  Sender: FDA-Public Use
  Company Number: GE-BAUSCH-BL-2017-031504

PATIENT
  Sex: Male

DRUGS (7)
  1. VIRAZOLE [Suspect]
     Active Substance: RIBAVIRIN
     Route: 042
  2. VIRAZOLE [Suspect]
     Active Substance: RIBAVIRIN
     Indication: ATRIAL FIBRILLATION
     Route: 042
  3. FAVIPIRAVIR [Suspect]
     Active Substance: FAVIPIRAVIR
     Indication: LASSA FEVER
     Dosage: LOADING DOSE
     Route: 048
  4. FAVIPIRAVIR [Suspect]
     Active Substance: FAVIPIRAVIR
     Route: 048
  5. VIRAZOLE [Suspect]
     Active Substance: RIBAVIRIN
     Indication: LASSA FEVER
     Route: 042
     Dates: start: 20160315
  6. VIRAZOLE [Suspect]
     Active Substance: RIBAVIRIN
     Route: 042
     Dates: end: 20160327
  7. METAMIZOLE [Suspect]
     Active Substance: METAMIZOLE
     Indication: PRODUCT USED FOR UNKNOWN INDICATION
     Route: 065

REACTIONS (7)
  - Transaminases decreased [Recovered/Resolved]
  - Blood bilirubin increased [Recovered/Resolved]
  - Haemoglobin decreased [Recovered/Resolved]
  - Blood lactate dehydrogenase increased [Recovered/Resolved]
  - Atrial fibrillation [Recovered/Resolved]
  - Toxicity to various agents [Unknown]
  - Off label use [Recovered/Resolved]

NARRATIVE: CASE EVENT DATE: 20160315
